FAERS Safety Report 6398032-X (Version None)
Quarter: 2009Q4

REPORT INFORMATION
  Report Type: 
  Country: None (occurrence: None)
  Receive Date: 20091013
  Receipt Date: 20091002
  Transmission Date: 20100525
  Serious: Yes (Other)
  Sender: FDA-Public Use
  Company Number: US-AMGEN-QUU367449

PATIENT
  Sex: Female

DRUGS (2)
  1. ENBREL [Suspect]
     Indication: RHEUMATOID ARTHRITIS
     Route: 058
     Dates: start: 20061223
  2. METHOTREXATE [Concomitant]
     Route: 048

REACTIONS (10)
  - COUGH [None]
  - HYPERHIDROSIS [None]
  - HYPOGLYCAEMIA [None]
  - LOSS OF CONSCIOUSNESS [None]
  - MYCOTIC ALLERGY [None]
  - PALPITATIONS [None]
  - PULMONARY CONGESTION [None]
  - RHEUMATOID ARTHRITIS [None]
  - SINUSITIS [None]
  - TREMOR [None]
